FAERS Safety Report 14412388 (Version 1)
Quarter: 2018Q1

REPORT INFORMATION
  Report Type: Spontaneous
  Country: US (occurrence: US)
  Receive Date: 20180118
  Receipt Date: 20180118
  Transmission Date: 20180509
  Serious: Yes (Other)
  Sender: FDA-Public Use
  Company Number: None

PATIENT
  Age: 63 Year
  Sex: Male
  Weight: 89.46 kg

DRUGS (1)
  1. ROLAPITANT [Suspect]
     Active Substance: ROLAPITANT
     Indication: VOMITING
     Dosage: ?          OTHER FREQUENCY:EVERY 2 WEEKS;?
     Route: 041

REACTIONS (2)
  - Flushing [None]
  - Feeling hot [None]

NARRATIVE: CASE EVENT DATE: 20171229
